FAERS Safety Report 8531682-0 (Version None)
Quarter: 2012Q3

REPORT INFORMATION
  Report Type: 
  Country: None (occurrence: None)
  Receive Date: 20120723
  Receipt Date: 20120709
  Transmission Date: 20120928
  Serious: Yes (Hospitalization, Other)
  Sender: FDA-Public Use
  Company Number: US-009507513-1207USA007827

PATIENT

DRUGS (8)
  1. FOSAMAX [Suspect]
  2. FOSAMAX PLUS D [Suspect]
     Indication: OSTEOPOROSIS
  3. FOSAMAX [Suspect]
     Indication: OSTEOPENIA
     Dosage: UNK
     Route: 048
     Dates: start: 19960101, end: 20080501
  4. FOSAMAX PLUS D [Suspect]
     Indication: OSTEOPENIA
     Dosage: UNK
     Route: 048
     Dates: start: 19960101, end: 20080101
  5. FOSAMAX [Suspect]
     Dosage: 70 MG, QW
     Dates: start: 20021101, end: 20080501
  6. FOSAMAX [Suspect]
  7. FOSAMAX [Suspect]
     Indication: OSTEOPOROSIS
  8. FOSAMAX [Suspect]
     Dosage: 10 MG, UNK
     Route: 048
     Dates: start: 19980518

REACTIONS (11)
  - LEUKOPENIA [None]
  - INFECTION [None]
  - ANAEMIA POSTOPERATIVE [None]
  - INTERNATIONAL NORMALISED RATIO DECREASED [None]
  - HYPOTHYROIDISM [None]
  - ASTHENIA [None]
  - ANTIBIOTIC LEVEL ABOVE THERAPEUTIC [None]
  - ARTHRALGIA [None]
  - DIARRHOEA [None]
  - ELECTROLYTE IMBALANCE [None]
  - FEMUR FRACTURE [None]
